FAERS Safety Report 8344209-3 (Version None)
Quarter: 2012Q2

REPORT INFORMATION
  Report Type: 
  Country: None (occurrence: None)
  Receive Date: 20120508
  Receipt Date: 20110323
  Transmission Date: 20120825
  Serious: Yes (Other)
  Sender: FDA-Public Use
  Company Number: US-TEVA-2011001401

PATIENT
  Sex: Female

DRUGS (2)
  1. TREANDA [Suspect]
     Indication: CHRONIC LYMPHOCYTIC LEUKAEMIA
     Route: 042
     Dates: end: 20110201
  2. RITUXIMAB [Suspect]
     Indication: CHRONIC LYMPHOCYTIC LEUKAEMIA
     Dates: end: 20110201

REACTIONS (1)
  - WHITE BLOOD CELL COUNT DECREASED [None]
